FAERS Safety Report 15893986 (Version 1)
Quarter: 2019Q1

REPORT INFORMATION
  Report Type: Spontaneous
  Country: US (occurrence: US)
  Receive Date: 20190130
  Receipt Date: 20190130
  Transmission Date: 20190417
  Serious: Yes (Other)
  Sender: FDA-Public Use
  Company Number: None

PATIENT
  Age: 48 Year
  Sex: Male
  Weight: 81 kg

DRUGS (4)
  1. METHIMAZOLE. [Suspect]
     Active Substance: METHIMAZOLE
     Indication: HYPERTHYROIDISM
     Dosage: ?          QUANTITY:2 TABLET(S);?
     Route: 048
     Dates: start: 20190115, end: 20190130
  2. METHIMAZOLE. [Concomitant]
     Active Substance: METHIMAZOLE
  3. ATENOLOL-CHLORTHALIDON [Concomitant]
  4. VITA FUSION VITAMIN C [Concomitant]

REACTIONS (4)
  - Disturbance in attention [None]
  - Gout [None]
  - Blood pressure increased [None]
  - Memory impairment [None]

NARRATIVE: CASE EVENT DATE: 20190124
